FAERS Safety Report 5499033-6 (Version None)
Quarter: 2007Q4

REPORT INFORMATION
  Report Type: 
  Country: None (occurrence: None)
  Receive Date: 20071026
  Receipt Date: 20070521
  Transmission Date: 20080405
  Serious: No
  Sender: FDA-Public Use
  Company Number: A0652134A

PATIENT
  Age: 84 Year
  Sex: Female

DRUGS (5)
  1. ADVAIR DISKUS 100/50 [Suspect]
     Indication: ASTHMA
     Dosage: 1PUFF TWICE PER DAY
     Route: 055
  2. PLAVIX [Concomitant]
  3. PLENDIL [Concomitant]
  4. FLOXIN [Concomitant]
  5. ZANTAC [Concomitant]

REACTIONS (2)
  - DRUG INEFFECTIVE [None]
  - MUSCULAR WEAKNESS [None]
